FAERS Safety Report 7236981-0 (Version None)
Quarter: 2011Q1

REPORT INFORMATION
  Report Type: 
  Country: None (occurrence: None)
  Receive Date: 20110121
  Receipt Date: 20110114
  Transmission Date: 20110831
  Serious: Yes (Hospitalization)
  Sender: FDA-Public Use
  Company Number: US-BIOGENIDEC-2011BI001914

PATIENT
  Age: 55 Year
  Sex: Female
  Weight: 70 kg

DRUGS (6)
  1. MULTI-VITAMIN [Concomitant]
  2. AVONEX [Suspect]
     Indication: MULTIPLE SCLEROSIS
     Route: 030
     Dates: start: 19970201, end: 20030101
  3. BACLOFEN [Concomitant]
  4. NASAL DECONGESTANT [Concomitant]
     Indication: SEASONAL ALLERGY
  5. AVONEX [Suspect]
     Route: 030
     Dates: start: 20030101
  6. SUPER B COMPLEX [Concomitant]

REACTIONS (5)
  - HYPERTENSION [None]
  - BLADDER PROLAPSE [None]
  - POLLAKIURIA [None]
  - PAIN IN EXTREMITY [None]
  - SEASONAL ALLERGY [None]
